FAERS Safety Report 9377355 (Version 1)
Quarter: 2013Q3

REPORT INFORMATION
  Report Type: Spontaneous
  Country: US (occurrence: US)
  Receive Date: 20130701
  Receipt Date: 20130701
  Transmission Date: 20140515
  Serious: Yes (Other)
  Sender: FDA-Public Use
  Company Number: US-PFIZER INC-2013193427

PATIENT
  Age: 57 Year
  Sex: Female
  Weight: 83.9 kg

DRUGS (5)
  1. PRISTIQ [Suspect]
     Indication: MOOD ALTERED
     Dosage: 100 MG, 1X/DAY
     Route: 048
  2. PRISTIQ [Suspect]
     Indication: BIPOLAR DISORDER
  3. PRISTIQ [Suspect]
     Indication: DEPRESSION
  4. LAMICTAL [Concomitant]
     Dosage: UNK
  5. LITHIUM [Concomitant]
     Dosage: 300 MG, 1X/DAY

REACTIONS (7)
  - Non-alcoholic steatohepatitis [Unknown]
  - Hepatic enzyme increased [Unknown]
  - Hepatomegaly [Unknown]
  - Weight decreased [Unknown]
  - Weight increased [Unknown]
  - Hyperhidrosis [Unknown]
  - Activities of daily living impaired [Unknown]
